FAERS Safety Report 8435468-7 (Version None)
Quarter: 2012Q2

REPORT INFORMATION
  Report Type: 
  Country: None (occurrence: None)
  Receive Date: 20120614
  Receipt Date: 20120608
  Transmission Date: 20120825
  Serious: Yes (Other)
  Sender: FDA-Public Use
  Company Number: BR-PFIZER INC-2012139659

PATIENT
  Age: 59 Year
  Sex: Male

DRUGS (1)
  1. VIAGRA [Suspect]
     Indication: PROSTATIC DISORDER
     Dosage: 50 MG, 1X/DAY
     Route: 048
     Dates: start: 20080208

REACTIONS (1)
  - PROSTATIC DISORDER [None]
